FAERS Safety Report 15879637 (Version 1)
Quarter: 2019Q1

REPORT INFORMATION
  Report Type: Spontaneous
  Country: SE (occurrence: SE)
  Receive Date: 20190128
  Receipt Date: 20190128
  Transmission Date: 20190417
  Serious: Yes (Life-Threatening, Hospitalization, Other)
  Sender: FDA-Public Use
  Company Number: PHHY2019SE016996

PATIENT
  Age: 28 Year
  Sex: Female

DRUGS (10)
  1. EPINEPHRINE. [Concomitant]
     Active Substance: EPINEPHRINE
     Indication: PRODUCT USED FOR UNKNOWN INDICATION
     Route: 065
  2. DOBUTAMINE [Concomitant]
     Active Substance: DOBUTAMINE\DOBUTAMINE HYDROCHLORIDE
     Indication: PRODUCT USED FOR UNKNOWN INDICATION
     Route: 065
  3. DOXYCYCLINE. [Concomitant]
     Active Substance: DOXYCYCLINE
     Indication: MYOCARDITIS
     Route: 065
  4. GENTAMICIN. [Concomitant]
     Active Substance: GENTAMICIN
     Indication: MYOCARDITIS
     Route: 065
  5. ISOPROTERENOL. [Concomitant]
     Active Substance: ISOPROTERENOL
     Indication: PRODUCT USED FOR UNKNOWN INDICATION
     Route: 065
  6. TICAGRELOR. [Suspect]
     Active Substance: TICAGRELOR
     Indication: ACUTE CORONARY SYNDROME
     Route: 065
  7. BENZYLPENICILLIN [Concomitant]
     Active Substance: PENICILLIN G
     Indication: MYOCARDITIS
     Dosage: 3 UG\LITRE QD
     Route: 065
  8. FONDAPARINUX [Suspect]
     Active Substance: FONDAPARINUX
     Indication: PRODUCT USED FOR UNKNOWN INDICATION
     Route: 065
  9. MILRINONE [Concomitant]
     Active Substance: MILRINONE
     Indication: PRODUCT USED FOR UNKNOWN INDICATION
     Route: 065
  10. ACETYLSALICYLIC ACID [Suspect]
     Active Substance: ASPIRIN
     Indication: PRODUCT USED FOR UNKNOWN INDICATION
     Route: 065

REACTIONS (11)
  - Liver injury [Unknown]
  - Spinal cord infarction [Unknown]
  - Paraplegia [Unknown]
  - Acute kidney injury [Unknown]
  - Atrioventricular block [Unknown]
  - Haemorrhagic diathesis [Unknown]
  - Spinal cord haemorrhage [Unknown]
  - Catheter site haemorrhage [Unknown]
  - Upper gastrointestinal haemorrhage [Unknown]
  - Cardiac arrest [Unknown]
  - Cardiogenic shock [Unknown]
